FAERS Safety Report 20214332 (Version 1)
Quarter: 2021Q4

REPORT INFORMATION
  Report Type: Spontaneous
  Country: CN (occurrence: CN)
  Receive Date: 20211221
  Receipt Date: 20211221
  Transmission Date: 20220303
  Serious: Yes (Hospitalization)
  Sender: FDA-Public Use
  Company Number: CN-PFIZER INC-202101815182

PATIENT
  Age: 43 Year
  Sex: Male
  Weight: 62 kg

DRUGS (1)
  1. LIPITOR [Suspect]
     Active Substance: ATORVASTATIN CALCIUM
     Indication: Hypertension
     Dosage: 1 DF, 1X/DAY
     Route: 048
     Dates: start: 20211101, end: 20211207

REACTIONS (6)
  - Hepatic function abnormal [Recovering/Resolving]
  - Diarrhoea [Unknown]
  - Dizziness [Unknown]
  - Asthenia [Unknown]
  - Product use in unapproved indication [Recovered/Resolved]
  - Off label use [Recovered/Resolved]

NARRATIVE: CASE EVENT DATE: 20210101
